FAERS Safety Report 6752381-1 (Version None)
Quarter: 2010Q2

REPORT INFORMATION
  Report Type: 
  Country: None (occurrence: None)
  Receive Date: 20100601
  Receipt Date: 20100601
  Transmission Date: 20101027
  Serious: Yes (Hospitalization, Disabling)
  Sender: FDA-Public Use
  Company Number: None

PATIENT
  Age: 70 Year
  Sex: Female
  Weight: 77 kg

DRUGS (14)
  1. ACYCLOVIR [Suspect]
     Indication: MENINGITIS VIRAL
     Dosage: 1000 MG Q 8 HOURS IV
     Route: 042
     Dates: start: 20100516, end: 20100518
  2. ACYCLOVIR [Suspect]
     Indication: MENINGITIS VIRAL
     Dosage: 800 MG TID PO
     Route: 048
     Dates: start: 20100519, end: 20100519
  3. NALOXONE [Concomitant]
  4. MULTI-VITAMIN [Concomitant]
  5. ASPART INSULIN [Concomitant]
  6. VANCOMYCIN [Concomitant]
  7. AMLODIPINE [Concomitant]
  8. RANITIDINE [Concomitant]
  9. HALOPERIDOL [Concomitant]
  10. CEFTRIAXONE [Concomitant]
  11. GADODIAMINE [Concomitant]
  12. CYCLOBENZAPRINE [Concomitant]
  13. ACETAMINOPHEN AND HYDROCODONE BITARTRATE [Concomitant]
  14. ACETAMINOPHEN [Concomitant]

REACTIONS (1)
  - RENAL FAILURE ACUTE [None]
